FAERS Safety Report 13499759 (Version 3)
Quarter: 2018Q2

REPORT INFORMATION
  Report Type: Spontaneous
  Country: JP (occurrence: JP)
  Receive Date: 20170501
  Receipt Date: 20180621
  Transmission Date: 20180711
  Serious: Yes (Death)
  Sender: FDA-Public Use
  Company Number: PHJP2017JP014671

PATIENT
  Age: 81 Year
  Sex: Male

DRUGS (2)
  1. NEORAL [Suspect]
     Active Substance: CYCLOSPORINE
     Indication: APLASTIC ANAEMIA
     Dosage: UNK
     Route: 048
  2. ANTITHYMOCYTE IMMUNOGLOBULIN (RABBIT) [Suspect]
     Active Substance: LAPINE T-LYMPHOCYTE IMMUNE GLOBULIN
     Indication: APLASTIC ANAEMIA
     Dosage: 3.3 MG/KG, QD
     Route: 065

REACTIONS (7)
  - Pyrexia [Fatal]
  - Lymphocyte morphology abnormal [Fatal]
  - Respiratory failure [Fatal]
  - Epstein-Barr virus associated lymphoproliferative disorder [Fatal]
  - Product use in unapproved indication [Unknown]
  - Serum ferritin increased [Fatal]
  - Metabolic acidosis [Fatal]
